FAERS Safety Report 6802982 (Version 2)
Quarter: 2020Q3

REPORT INFORMATION
  Report Type: Report from Study
  Country: US (occurrence: US)
  Receive Date: 20081104
  Receipt Date: 20090123
  Transmission Date: 20201104
  Serious: Yes (Hospitalization)
  Sender: FDA-Public Use
  Company Number: US-ROCHE-594341

PATIENT
  Age: 86 Year
  Sex: Female
  Weight: 51.3 kg

DRUGS (6)
  1. LANOXIN [Concomitant]
     Active Substance: DIGOXIN
  2. IBANDRONIC ACID. [Suspect]
     Active Substance: IBANDRONIC ACID
     Indication: OSTEOPOROSIS
     Route: 048
     Dates: start: 20060320, end: 200803
  3. POTASSIUM [Concomitant]
     Active Substance: POTASSIUM
  4. SYNTHROID [Concomitant]
     Active Substance: LEVOTHYROXINE SODIUM
  5. CALTRATE [Concomitant]
     Active Substance: CALCIUM CARBONATE
  6. MAGNESIUM [Concomitant]
     Active Substance: MAGNESIUM

REACTIONS (5)
  - Femur fracture [Unknown]
  - Arthralgia [Unknown]
  - Fall [None]
  - Bone pain [Not Recovered/Not Resolved]
  - Myalgia [Not Recovered/Not Resolved]

NARRATIVE: CASE EVENT DATE: 20080624
